FAERS Safety Report 8246968-7 (Version None)
Quarter: 2012Q1

REPORT INFORMATION
  Report Type: 
  Country: None (occurrence: None)
  Receive Date: 20120330
  Receipt Date: 20120327
  Transmission Date: 20120608
  Serious: No
  Sender: FDA-Public Use
  Company Number: US-TEVA-330542USA

PATIENT
  Sex: Female

DRUGS (1)
  1. PLAN B ONE-STEP [Suspect]
     Indication: POST COITAL CONTRACEPTION
     Dosage: 1.5 MILLIGRAM;
     Route: 067
     Dates: start: 20120326, end: 20120326

REACTIONS (2)
  - VULVOVAGINAL DISCOMFORT [None]
  - INCORRECT ROUTE OF DRUG ADMINISTRATION [None]
